FAERS Safety Report 15351805 (Version 1)
Quarter: 2018Q3

REPORT INFORMATION
  Report Type: Report from Study
  Country: None (occurrence: CA)
  Receive Date: 20180905
  Receipt Date: 20180905
  Transmission Date: 20181010
  Serious: Yes (Other)
  Sender: FDA-Public Use
  Company Number: CA-ABBVIE-18K-028-2472120-00

PATIENT
  Sex: Female

DRUGS (1)
  1. HUMIRA [Suspect]
     Active Substance: ADALIMUMAB
     Indication: CROHN^S DISEASE
     Route: 058
     Dates: start: 20150921

REACTIONS (12)
  - Gastrointestinal stoma complication [Not Recovered/Not Resolved]
  - Stoma site pain [Not Recovered/Not Resolved]
  - Surgical failure [Unknown]
  - Skin burning sensation [Not Recovered/Not Resolved]
  - Stoma site discharge [Not Recovered/Not Resolved]
  - Surgery [Not Recovered/Not Resolved]
  - Skin erosion [Not Recovered/Not Resolved]
  - Stoma site haemorrhage [Not Recovered/Not Resolved]
  - Intestinal anastomosis [Not Recovered/Not Resolved]
  - Apparent death [Unknown]
  - Gastrointestinal stoma output increased [Not Recovered/Not Resolved]
  - Fear [Not Recovered/Not Resolved]
